FAERS Safety Report 23042691 (Version 4)
Quarter: 2023Q4

REPORT INFORMATION
  Report Type: Spontaneous
  Country: BR (occurrence: BR)
  Receive Date: 20231009
  Receipt Date: 20231206
  Transmission Date: 20240110
  Serious: Yes (Other)
  Sender: FDA-Public Use
  Company Number: BR-BoehringerIngelheim-2023-BI-264707

PATIENT
  Age: 54 Year
  Sex: Female
  Weight: 80 kg

DRUGS (7)
  1. JARDIANCE [Suspect]
     Active Substance: EMPAGLIFLOZIN
     Indication: Glucose tolerance impaired
     Dosage: IN THE MORNING
     Route: 048
     Dates: start: 2022
  2. JARDIANCE [Suspect]
     Active Substance: EMPAGLIFLOZIN
     Indication: Blood pressure management
  3. LOSARTAN [Suspect]
     Active Substance: LOSARTAN
     Indication: Hypertension
     Dosage: IN THE MORNING
     Route: 048
  4. LOSARTAN [Suspect]
     Active Substance: LOSARTAN
     Route: 048
     Dates: end: 202107
  5. LOSARTAN [Suspect]
     Active Substance: LOSARTAN
     Dosage: IN THE MORNING
     Route: 048
     Dates: start: 202107, end: 202303
  6. LOSARTAN [Suspect]
     Active Substance: LOSARTAN
     Dosage: IN THE MORNING AND IN THE EVENING
     Route: 048
     Dates: start: 202303
  7. METOPROLOL SUCCINATE [Concomitant]
     Active Substance: METOPROLOL SUCCINATE
     Indication: Hypertension
     Route: 048

REACTIONS (10)
  - Monoplegia [Recovered/Resolved]
  - Cerebrovascular accident [Not Recovered/Not Resolved]
  - Apnoea [Unknown]
  - Pollakiuria [Not Recovered/Not Resolved]
  - Hypertension [Recovered/Resolved]
  - Peripheral venous disease [Not Recovered/Not Resolved]
  - Hypotension [Not Recovered/Not Resolved]
  - Feeling of despair [Unknown]
  - Intentional product use issue [Unknown]
  - Glycosylated haemoglobin decreased [Unknown]

NARRATIVE: CASE EVENT DATE: 20220101
